FAERS Safety Report 8256234-1 (Version None)
Quarter: 2012Q2

REPORT INFORMATION
  Report Type: 
  Country: None (occurrence: None)
  Receive Date: 20120403
  Receipt Date: 20120323
  Transmission Date: 20120825
  Serious: Yes (Other)
  Sender: FDA-Public Use
  Company Number: JP-FRI-1000029494

PATIENT
  Sex: Female

DRUGS (9)
  1. MAGTECT [Concomitant]
     Dosage: 35 ML
     Route: 048
  2. NITRAZEPAM [Concomitant]
     Dosage: 10 MG
     Route: 048
  3. LITHIUM CARBONATE [Concomitant]
     Dosage: 600 MG
     Route: 048
  4. LEXAPRO [Suspect]
     Indication: DEPRESSION
     Dosage: 10 MG
     Route: 048
  5. SEROQUEL [Concomitant]
     Dosage: 700 MG
     Route: 048
  6. GOODMIN [Concomitant]
     Dosage: 0.25 MG
     Route: 048
  7. PRAVASTATIN SODIUM [Suspect]
     Dosage: 1 DF
     Dates: start: 20111101, end: 20111201
  8. LANSOPRAZOLE [Concomitant]
     Dosage: 30 MG
     Route: 048
  9. FLUNITRAZEPAM [Concomitant]
     Dosage: 4 MG
     Route: 048

REACTIONS (1)
  - HEPATIC FUNCTION ABNORMAL [None]
